FAERS Safety Report 20157422 (Version 14)
Quarter: 2024Q3

REPORT INFORMATION
  Report Type: Spontaneous
  Country: FR (occurrence: FR)
  Receive Date: 20211207
  Receipt Date: 20240919
  Transmission Date: 20241017
  Serious: Yes (Death, Hospitalization, Other)
  Sender: ORGANON
  Company Number: FR-BAYER-2015-453122

PATIENT
  Age: 71 Year
  Sex: Male

DRUGS (128)
  1. ZOCOR [Suspect]
     Active Substance: SIMVASTATIN
     Indication: Product used for unknown indication
     Dosage: 20 MILLIGRAM, QD (1/DAY)
     Route: 048
  2. MIANSERIN HYDROCHLORIDE [Suspect]
     Active Substance: MIANSERIN HYDROCHLORIDE
     Indication: Product used for unknown indication
     Dosage: 60 MG,QD
     Route: 048
  3. TREMIN [Suspect]
     Active Substance: TRIHEXYPHENIDYL HYDROCHLORIDE
     Indication: Product used for unknown indication
     Dosage: 1 MG, QD
     Route: 048
  4. TREMIN [Suspect]
     Active Substance: TRIHEXYPHENIDYL HYDROCHLORIDE
     Dosage: 1 DOSAGE FORM, QD
     Route: 048
  5. ZOPICLONE [Suspect]
     Active Substance: ZOPICLONE
     Indication: Product used for unknown indication
     Dosage: 15 MG,QD
     Route: 048
  6. ALBUTEROL SULFATE [Suspect]
     Active Substance: ALBUTEROL SULFATE
     Indication: Product used for unknown indication
     Dosage: UNK
     Route: 045
  7. ALBUTEROL SULFATE [Suspect]
     Active Substance: ALBUTEROL SULFATE
     Dosage: UNK
     Route: 045
  8. ALBUTEROL SULFATE [Suspect]
     Active Substance: ALBUTEROL SULFATE
     Dosage: 1 DOSAGE FORM, BID (2 DOSAGE FORM, 1/DAY)
     Route: 045
  9. CLOBAZAM [Suspect]
     Active Substance: CLOBAZAM
     Indication: Product used for unknown indication
     Dosage: 10 MG, 3X/DAY (ONCE EVERY 8HOURS)
     Route: 048
  10. CLOBAZAM [Suspect]
     Active Substance: CLOBAZAM
     Dosage: 30 MG, TID
     Route: 048
  11. CLOBAZAM [Suspect]
     Active Substance: CLOBAZAM
     Dosage: 30 MILLIGRAM, QD (10 MG, 3X/DAY (ONCE EVERY 8HOURS)
     Route: 048
  12. CLOBAZAM [Suspect]
     Active Substance: CLOBAZAM
     Dosage: 90 MILLIGRAM, QD
     Route: 048
  13. CLOBAZAM [Suspect]
     Active Substance: CLOBAZAM
     Dosage: 20 MILLIGRAM, QD
     Route: 048
  14. CLOBAZAM [Suspect]
     Active Substance: CLOBAZAM
     Dosage: 30 MILLIGRAM, QD (10 MG, 3X/DAY)
     Route: 048
  15. CLOBAZAM [Suspect]
     Active Substance: CLOBAZAM
     Dosage: 4 MILLIGRAM, QD
     Route: 048
  16. PROPRANOLOL [Suspect]
     Active Substance: PROPRANOLOL HYDROCHLORIDE
     Indication: Product used for unknown indication
     Dosage: 20 MG, QD (1/DAY)
     Route: 048
  17. PROPRANOLOL [Suspect]
     Active Substance: PROPRANOLOL HYDROCHLORIDE
     Dosage: 100 MILLIGRAM, Q12H
     Route: 048
  18. PROPRANOLOL [Suspect]
     Active Substance: PROPRANOLOL HYDROCHLORIDE
     Dosage: 100 MILLIGRAM, BID
     Route: 048
  19. PROPRANOLOL [Suspect]
     Active Substance: PROPRANOLOL HYDROCHLORIDE
     Dosage: 100 MILLIGRAM, BID
     Route: 048
  20. ACETAMINOPHEN [Suspect]
     Active Substance: ACETAMINOPHEN
     Indication: Product used for unknown indication
     Dosage: 1000 MG, 2X/DAY (ONCE EVERY 12HOURS)
     Route: 048
  21. ACETAMINOPHEN [Suspect]
     Active Substance: ACETAMINOPHEN
     Dosage: 100 MG, BID (ONCE EVERY 12HOURS)
     Route: 048
  22. ACETAMINOPHEN [Suspect]
     Active Substance: ACETAMINOPHEN
     Dosage: 1000 MG, 2X/DAY (ONCE EVERY 12HOURS)
     Route: 048
  23. ACETAMINOPHEN [Suspect]
     Active Substance: ACETAMINOPHEN
     Dosage: 400 MILLIGRAM (200 MG, BID)
     Route: 048
  24. ACETAMINOPHEN [Suspect]
     Active Substance: ACETAMINOPHEN
     Dosage: 400 MILLIGRAM (200 MG, BID)
     Route: 048
  25. ACETAMINOPHEN [Suspect]
     Active Substance: ACETAMINOPHEN
     Dosage: 1000 MG, 2X/DAY
     Route: 048
  26. ACETAMINOPHEN [Suspect]
     Active Substance: ACETAMINOPHEN
     Dosage: 1000 MILLIGRAM, BID (1000 MG, 2X/DAY (ONCE EVERY 12HOURS)
     Route: 048
  27. ACETAMINOPHEN [Suspect]
     Active Substance: ACETAMINOPHEN
     Dosage: 200 MILLIGRAM, BID
     Route: 048
  28. ACETAMINOPHEN [Suspect]
     Active Substance: ACETAMINOPHEN
     Dosage: 100 MG, 2X/DAY
     Route: 048
  29. ACETAMINOPHEN [Suspect]
     Active Substance: ACETAMINOPHEN
     Dosage: 200 MILLIGRAM, QD (100 MG, BID (ONCE EVERY 12HOURS))
     Route: 048
  30. ACETAMINOPHEN [Suspect]
     Active Substance: ACETAMINOPHEN
     Dosage: 100 MILLIGRAM
     Route: 048
  31. ACETAMINOPHEN [Suspect]
     Active Substance: ACETAMINOPHEN
     Dosage: 2000 MILLIGRAM, QD
     Route: 048
  32. ACETAMINOPHEN [Suspect]
     Active Substance: ACETAMINOPHEN
     Dosage: 1000 MILLIGRAM, BID (ONCE EVERY 12HOURS)
     Route: 048
  33. ACETAMINOPHEN [Suspect]
     Active Substance: ACETAMINOPHEN
     Dosage: 200 MG, BID
     Route: 048
  34. RIVOTRIL [Suspect]
     Active Substance: CLONAZEPAM
     Indication: Product used for unknown indication
     Dosage: 4 MG,QD
     Route: 048
  35. POLYETHYLENE GLYCOL 3350 [Suspect]
     Active Substance: POLYETHYLENE GLYCOL 3350
     Indication: Product used for unknown indication
     Dosage: 2 DF, QD
     Route: 048
  36. SEREVENT DISKUS [Suspect]
     Active Substance: SALMETEROL XINAFOATE
     Indication: Product used for unknown indication
     Dosage: 2 DF, BID
     Route: 045
  37. SEREVENT DISKUS [Suspect]
     Active Substance: SALMETEROL XINAFOATE
     Dosage: 1 DF,BID (1 PUFF) (ONCE EVERY 12HOURS)
     Route: 045
  38. SEREVENT DISKUS [Suspect]
     Active Substance: SALMETEROL XINAFOATE
     Dosage: 1 DF, 2X/DAY (ONCE EVERY 12HOURS)
     Route: 045
  39. SEREVENT DISKUS [Suspect]
     Active Substance: SALMETEROL XINAFOATE
     Dosage: 1 DF,BID (1 PUFF) (ONCE EVERY 12HOURS)
     Route: 045
  40. LASIX [Suspect]
     Active Substance: FUROSEMIDE
     Indication: Product used for unknown indication
     Dosage: 40 MG,QD
     Route: 048
  41. ALTACE [Suspect]
     Active Substance: RAMIPRIL
     Indication: Product used for unknown indication
     Dosage: 5 MG, DAILY
     Route: 048
  42. PIPAMPERONE [Suspect]
     Active Substance: PIPAMPERONE
     Indication: Product used for unknown indication
     Dosage: 20 MG, DAILY
     Route: 048
  43. ESOMEPRAZOLE MAGNESIUM [Suspect]
     Active Substance: ESOMEPRAZOLE MAGNESIUM
     Indication: Product used for unknown indication
     Dosage: 20 MG, QD (PROLONGED-RELEASE CAPSULE)
     Route: 048
  44. OMEPRAZOLE [Suspect]
     Active Substance: OMEPRAZOLE
     Indication: Product used for unknown indication
     Dosage: 20 MG, DAILY
     Route: 048
  45. OMEPRAZOLE [Suspect]
     Active Substance: OMEPRAZOLE
     Dosage: 20 MG, DAILY
     Route: 048
  46. NITROGLYCERIN [Suspect]
     Active Substance: NITROGLYCERIN
     Indication: Product used for unknown indication
     Dosage: 10 MILLIGRAM, DAILY
     Route: 048
  47. NITROGLYCERIN [Suspect]
     Active Substance: NITROGLYCERIN
     Dosage: 10 MILLIGRAM, DAILY
     Route: 062
  48. DIACEREIN [Suspect]
     Active Substance: DIACEREIN
     Indication: Product used for unknown indication
     Dosage: 50 MG, 2X/DAY (ONCE EVERY 12HOURS)
     Route: 048
  49. DIACEREIN [Suspect]
     Active Substance: DIACEREIN
     Dosage: 100 MG, BID
     Route: 048
  50. DIACEREIN [Suspect]
     Active Substance: DIACEREIN
     Dosage: 200 MILLIGRAM, QD
     Route: 048
  51. VERAPAMIL HYDROCHLORIDE [Suspect]
     Active Substance: VERAPAMIL HYDROCHLORIDE
     Indication: Product used for unknown indication
     Dosage: 240 MILLIGRAM, QD ((200 MG, BID))
     Route: 048
  52. CELEBREX [Suspect]
     Active Substance: CELECOXIB
     Indication: Product used for unknown indication
     Dosage: UNK
     Route: 065
  53. CELEBREX [Suspect]
     Active Substance: CELECOXIB
     Dosage: UNK
     Route: 065
  54. CELEBREX [Suspect]
     Active Substance: CELECOXIB
     Dosage: UNK
     Route: 065
  55. CELEBREX [Suspect]
     Active Substance: CELECOXIB
     Dosage: UNK
  56. CELEBREX [Suspect]
     Active Substance: CELECOXIB
     Dosage: UNK
  57. CELEBREX [Suspect]
     Active Substance: CELECOXIB
     Dosage: UNK
  58. CELEBREX [Suspect]
     Active Substance: CELECOXIB
     Dosage: UNK
  59. ASPIRIN DL-LYSINE [Suspect]
     Active Substance: ASPIRIN DL-LYSINE
     Indication: Product used for unknown indication
     Dosage: 250 MG, QD
     Route: 048
  60. ASPIRIN DL-LYSINE [Suspect]
     Active Substance: ASPIRIN DL-LYSINE
     Dosage: 20 MILLIGRAM, QD
     Route: 048
  61. PREDNAZOLINE [Suspect]
     Active Substance: PREDNAZOLINE
     Indication: Product used for unknown indication
     Dosage: 1 PUFF, QD
     Route: 045
  62. PREDNAZOLINE [Suspect]
     Active Substance: PREDNAZOLINE
     Dosage: UNK
  63. PREDNAZOLINE [Suspect]
     Active Substance: PREDNAZOLINE
     Dosage: 1 PUFF QD
     Route: 045
  64. PREDNAZOLINE [Suspect]
     Active Substance: PREDNAZOLINE
     Dosage: 1 DOSAGE FORM, QD
     Route: 045
  65. PREDNAZOLINE [Suspect]
     Active Substance: PREDNAZOLINE
     Dosage: 1 DF, QD (1 PUFF, QD)
     Route: 045
  66. PREDNAZOLINE [Suspect]
     Active Substance: PREDNAZOLINE
     Dosage: 1 DOSAGE FORM, QD (1 PUFF, QD)
     Route: 045
  67. PREDNAZOLINE [Suspect]
     Active Substance: PREDNAZOLINE
     Dosage: UNK UNK, QD (1 PUFF QD)
     Route: 045
  68. PREDNAZOLINE [Suspect]
     Active Substance: PREDNAZOLINE
     Dosage: UNK, QD (1 PUFF)
     Route: 045
  69. PREDNAZOLINE [Suspect]
     Active Substance: PREDNAZOLINE
     Dosage: UNK
  70. NITROGLYCERIN [Suspect]
     Active Substance: NITROGLYCERIN
     Indication: Product used for unknown indication
     Dosage: 10 MG, QD
     Route: 062
  71. NITROGLYCERIN [Suspect]
     Active Substance: NITROGLYCERIN
     Dosage: UNK
     Route: 048
  72. ALBUTEROL [Suspect]
     Active Substance: ALBUTEROL
     Indication: Product used for unknown indication
     Dosage: 2 DOSAGE FORM, QD
  73. ALBUTEROL [Suspect]
     Active Substance: ALBUTEROL
     Dosage: UNK
  74. ALBUTEROL [Suspect]
     Active Substance: ALBUTEROL
     Dosage: UNK
  75. ALBUTEROL [Suspect]
     Active Substance: ALBUTEROL
     Dosage: UNK
     Route: 045
  76. ALBUTEROL [Suspect]
     Active Substance: ALBUTEROL
     Dosage: UNK
  77. VERAPAMIL HYDROCHLORIDE [Suspect]
     Active Substance: VERAPAMIL HYDROCHLORIDE
     Indication: Product used for unknown indication
     Dosage: 240 MILLIGRAM, QD
     Route: 048
  78. VERAPAMIL HYDROCHLORIDE [Suspect]
     Active Substance: VERAPAMIL HYDROCHLORIDE
     Dosage: UNK
  79. VERAPAMIL HYDROCHLORIDE [Suspect]
     Active Substance: VERAPAMIL HYDROCHLORIDE
     Dosage: 240 MILLIGRAM
  80. SALMETEROL XINAFOATE [Suspect]
     Active Substance: SALMETEROL XINAFOATE
     Indication: Product used for unknown indication
     Dosage: 1 DF, BID (1 PUFF) (ONCE EVERY 12HOURS)
     Route: 045
  81. SALMETEROL XINAFOATE [Suspect]
     Active Substance: SALMETEROL XINAFOATE
     Dosage: 1 PUFF , BID (1 DOSAGE FORM, 2/DAY)
  82. SALMETEROL XINAFOATE [Suspect]
     Active Substance: SALMETEROL XINAFOATE
     Dosage: UNK, 1 PUFF, TWICE A DAY
     Route: 045
  83. SALMETEROL XINAFOATE [Suspect]
     Active Substance: SALMETEROL XINAFOATE
     Dosage: UNK, BID (1 PUFF)
     Route: 045
  84. ASPIRIN DL-LYSINE\GLYCINE [Suspect]
     Active Substance: ASPIRIN DL-LYSINE\GLYCINE
     Indication: Product used for unknown indication
     Dosage: 20 MILLIGRAM, QD
     Route: 048
  85. ASPIRIN [Suspect]
     Active Substance: ASPIRIN
     Indication: Product used for unknown indication
     Dosage: 200 MILLIGRAM, QD
     Route: 048
  86. ASPIRIN [Suspect]
     Active Substance: ASPIRIN
     Dosage: 250 MILLIGRAM, QD
     Route: 048
  87. ASPIRIN [Suspect]
     Active Substance: ASPIRIN
     Dosage: 20 MILLIGRAM, QD
     Route: 048
  88. ASPIRIN [Suspect]
     Active Substance: ASPIRIN
     Dosage: }100 MG
  89. RAMIPRIL [Suspect]
     Active Substance: RAMIPRIL
     Indication: Product used for unknown indication
     Dosage: 5 MG, QD
     Route: 048
  90. FUROSEMIDE [Suspect]
     Active Substance: FUROSEMIDE
     Indication: Product used for unknown indication
     Dosage: 40 MILLIGRAM, 1/DAY
     Route: 048
  91. POLYETHYLENE GLYCOLS [Suspect]
     Active Substance: POLYETHYLENE GLYCOLS
     Indication: Product used for unknown indication
     Dosage: 2 DOSAGE FORM, QD
     Route: 048
  92. POLYETHYLENE GLYCOLS [Suspect]
     Active Substance: POLYETHYLENE GLYCOLS
     Dosage: 2 MILLIGRAM, QD
     Route: 048
  93. CLONAZEPAM [Suspect]
     Active Substance: CLONAZEPAM
     Indication: Product used for unknown indication
     Dosage: 30 MILLIGRAM, 1/DAY
     Route: 048
  94. CLONAZEPAM [Suspect]
     Active Substance: CLONAZEPAM
     Dosage: 4 MG, DAILY
     Route: 048
  95. CELECOXIB [Suspect]
     Active Substance: CELECOXIB
     Indication: Product used for unknown indication
     Dosage: UNK
  96. CELECOXIB [Suspect]
     Active Substance: CELECOXIB
     Dosage: UNK
  97. CELECOXIB [Suspect]
     Active Substance: CELECOXIB
     Dosage: UNK
  98. NITROGLYCERIN [Suspect]
     Active Substance: NITROGLYCERIN
     Indication: Product used for unknown indication
     Dosage: 10 MILLIGRAM, QD
     Route: 048
  99. NITROGLYCERIN [Suspect]
     Active Substance: NITROGLYCERIN
     Dosage: 10 MILLIGRAM, QD
     Route: 048
  100. NITROGLYCERIN [Suspect]
     Active Substance: NITROGLYCERIN
     Dosage: UNK
  101. CLOBAZAM [Suspect]
     Active Substance: CLOBAZAM
     Indication: Product used for unknown indication
     Dosage: 30 MILLIGRAM, QD
     Route: 048
  102. CLOBAZAM [Suspect]
     Active Substance: CLOBAZAM
     Dosage: 20 MG, QD
     Route: 048
  103. CLOBAZAM [Suspect]
     Active Substance: CLOBAZAM
     Dosage: 90 MILLIGRAM, QD
     Route: 048
  104. CLOBAZAM [Suspect]
     Active Substance: CLOBAZAM
     Dosage: 20 MG, QD
     Route: 048
  105. CLOBAZAM [Suspect]
     Active Substance: CLOBAZAM
     Dosage: 10 MILLIGRAM, TID
     Route: 048
  106. CLOBAZAM [Suspect]
     Active Substance: CLOBAZAM
     Dosage: 4 MILLIGRAM, QD
     Route: 048
  107. CLOBAZAM [Suspect]
     Active Substance: CLOBAZAM
     Dosage: 10 MILLIGRAM, TID (3X/DAY (ONCE EVERY 8HOURS))
     Route: 048
  108. TRIHEXYPHENIDYL HYDROCHLORIDE [Suspect]
     Active Substance: TRIHEXYPHENIDYL HYDROCHLORIDE
     Indication: Product used for unknown indication
     Dosage: 1 MG, QD
     Route: 048
  109. TRIHEXYPHENIDYL HYDROCHLORIDE [Suspect]
     Active Substance: TRIHEXYPHENIDYL HYDROCHLORIDE
     Dosage: 1 DOSAGE FORM, QD
     Route: 048
  110. ASPIRIN DL-LYSINE [Suspect]
     Active Substance: ASPIRIN DL-LYSINE
     Indication: Product used for unknown indication
     Dosage: 20 MILLIGRAM, QD
     Route: 048
  111. ASPIRIN DL-LYSINE [Suspect]
     Active Substance: ASPIRIN DL-LYSINE
     Dosage: 250 MILLIGRAM, QD
     Route: 048
  112. OMEPRAZOLE MAGNESIUM [Suspect]
     Active Substance: OMEPRAZOLE MAGNESIUM
     Indication: Product used for unknown indication
     Dosage: 20 MILLIGRAM
     Route: 048
  113. ACETAMINOPHEN [Suspect]
     Active Substance: ACETAMINOPHEN
     Indication: Product used for unknown indication
     Dosage: BID (ONCE EVERY 12HOURS)
     Route: 048
  114. ACETAMINOPHEN [Suspect]
     Active Substance: ACETAMINOPHEN
     Dosage: 100 MILLIGRAM
     Route: 048
  115. ACETAMINOPHEN [Suspect]
     Active Substance: ACETAMINOPHEN
     Dosage: BID2X/DAY (ONCE EVERY 12HOURS){/
     Route: 048
  116. ACETAMINOPHEN [Suspect]
     Active Substance: ACETAMINOPHEN
     Dosage: 200 MILLIGRAM, BID
     Route: 048
  117. ACETAMINOPHEN [Suspect]
     Active Substance: ACETAMINOPHEN
     Dosage: 100 MG, 2X/DAY
     Route: 048
  118. ACETAMINOPHEN [Suspect]
     Active Substance: ACETAMINOPHEN
     Dosage: 400 MILLIGRAM, QD
     Route: 048
  119. OXYMETAZOLINE HYDROCHLORIDE\PREDNISOLONE SODIUM PHOSPHATE [Suspect]
     Active Substance: OXYMETAZOLINE HYDROCHLORIDE\PREDNISOLONE SODIUM PHOSPHATE
     Indication: Product used for unknown indication
     Dosage: 1 PUFF, QD
  120. ASPIRIN DL-LYSINE [Suspect]
     Active Substance: ASPIRIN DL-LYSINE
     Indication: Product used for unknown indication
     Dosage: 20 MG,QD
     Route: 048
  121. ASPIRIN DL-LYSINE [Suspect]
     Active Substance: ASPIRIN DL-LYSINE
     Dosage: 250 MG, QD
     Route: 048
  122. ALBUTEROL [Suspect]
     Active Substance: ALBUTEROL
     Indication: Product used for unknown indication
     Dosage: UNK
  123. OXYGEN [Concomitant]
     Active Substance: OXYGEN
     Indication: Product used for unknown indication
     Dosage: UNK
  124. OXYMETAZOLINE HYDROCHLORIDE\PREDNISOLONE SODIUM PHOSPHATE [Concomitant]
     Active Substance: OXYMETAZOLINE HYDROCHLORIDE\PREDNISOLONE SODIUM PHOSPHATE
     Indication: Product used for unknown indication
     Dosage: 1 PUFF, QD
     Route: 045
  125. PREDNAZOLINE [Concomitant]
     Active Substance: PREDNAZOLINE
     Indication: Product used for unknown indication
     Dosage: 1 DOSAGE FORM, QD
  126. PREDNAZOLINE [Concomitant]
     Active Substance: PREDNAZOLINE
     Dosage: UNK, QD (1 PUFF QD)
     Route: 045
  127. PREDNAZOLINE [Concomitant]
     Active Substance: PREDNAZOLINE
     Dosage: 1 DOSAGE FORM, QD (1 PUFF, QD))
     Route: 045
  128. OXYMETAZOLINE HYDROCHLORIDE\PREDNISOLONE SODIUM PHOSPHATE [Concomitant]
     Active Substance: OXYMETAZOLINE HYDROCHLORIDE\PREDNISOLONE SODIUM PHOSPHATE
     Indication: Product used for unknown indication
     Dosage: 1 DOSAGE FORM
     Route: 045

REACTIONS (13)
  - Disease recurrence [Fatal]
  - Respiratory distress [Fatal]
  - Ischaemic stroke [Fatal]
  - Nausea [Fatal]
  - Brain scan abnormal [Fatal]
  - Respiratory failure [Fatal]
  - Cerebral artery thrombosis [Fatal]
  - Areflexia [Fatal]
  - Hemiplegia [Fatal]
  - Facial paralysis [Fatal]
  - Cerebrovascular accident [Fatal]
  - Off label use [Fatal]
  - Product use issue [Fatal]
